FAERS Safety Report 4926077-2 (Version None)
Quarter: 2006Q1

REPORT INFORMATION
  Report Type: 
  Country: None (occurrence: None)
  Receive Date: 20060228
  Receipt Date: 20050810
  Transmission Date: 20060701
  Serious: Yes (Other)
  Sender: FDA-Public Use
  Company Number: US-GLAXOSMITHKLINE-A0569710A

PATIENT
  Age: 47 Year
  Sex: Male
  Weight: 73.6 kg

DRUGS (5)
  1. LAMICTAL [Suspect]
     Indication: BIPOLAR DISORDER
     Dosage: 100Z UNKNOWN
     Route: 048
     Dates: start: 20050717, end: 20050803
  2. SEROQUEL [Concomitant]
     Route: 048
  3. XANAX [Concomitant]
     Dosage: 4MG PER DAY
     Route: 048
  4. CYMBALTA [Concomitant]
     Route: 048
  5. AMBIEN [Concomitant]
     Route: 048

REACTIONS (7)
  - ERYTHEMA OF EYELID [None]
  - EYE PAIN [None]
  - EYE PRURITUS [None]
  - MOUTH ULCERATION [None]
  - NASAL ULCER [None]
  - RASH [None]
  - STEVENS-JOHNSON SYNDROME [None]
